FAERS Safety Report 24158408 (Version 1)
Quarter: 2024Q3

REPORT INFORMATION
  Report Type: Spontaneous
  Country: US (occurrence: US)
  Receive Date: 20240731
  Receipt Date: 20240731
  Transmission Date: 20241017
  Serious: No
  Sender: MYLAN
  Company Number: US-MYLANLABS-2024M1067340

PATIENT
  Age: 43 Year
  Sex: Female

DRUGS (1)
  1. ESTRADIOL TRANSDERMAL SYSTEM [Suspect]
     Active Substance: ESTRADIOL
     Indication: Oestrogen replacement therapy
     Dosage: 0.1 MILLIGRAM, QD (ONCE A WEEK)
     Route: 062
     Dates: start: 20240706

REACTIONS (2)
  - Skin irritation [Unknown]
  - Product adhesion issue [Unknown]

NARRATIVE: CASE EVENT DATE: 20240706
